FAERS Safety Report 10527436 (Version 4)
Quarter: 2015Q4

REPORT INFORMATION
  Report Type: Spontaneous
  Country: JP (occurrence: JP)
  Receive Date: 20141020
  Receipt Date: 20151118
  Transmission Date: 20160304
  Serious: Yes (Death, Other)
  Sender: FDA-Public Use
  Company Number: JP-MALLINCKRODT-T201402138

PATIENT
  Age: 70 Year
  Sex: Female
  Weight: 39 kg

DRUGS (18)
  1. METHADONE [Suspect]
     Active Substance: METHADONE HYDROCHLORIDE
     Dosage: 5 MG, (15 MG DAILY DOSE)
     Route: 048
     Dates: start: 20140616, end: 20140617
  2. TAKEPRON [Concomitant]
     Active Substance: LANSOPRAZOLE
     Dosage: 15 MG, UNK
     Route: 048
     Dates: end: 20140623
  3. SERENACE [Concomitant]
     Active Substance: HALOPERIDOL
     Dosage: 0.75 MG
     Route: 048
     Dates: end: 20140605
  4. RINDERON V [Concomitant]
     Active Substance: BETAMETHASONE VALERATE
     Indication: ANALGESIC THERAPY
     Dosage: 1 MG
     Route: 065
     Dates: end: 20140623
  5. YODEL [Concomitant]
     Active Substance: SENNA LEAF
     Dosage: 80 MG
     Route: 048
     Dates: start: 20140529, end: 20140623
  6. METHADONE [Suspect]
     Active Substance: METHADONE HYDROCHLORIDE
     Dosage: 5 MG, (10 MG DAILY DOSE)
     Route: 048
     Dates: start: 20140429, end: 20140615
  7. LINTON                             /00027401/ [Concomitant]
     Dosage: 0.75 MG, UNK
     Route: 048
     Dates: start: 20140429, end: 20140623
  8. MAGMITT [Concomitant]
     Active Substance: MAGNESIUM OXIDE
     Dosage: 1500 MG
     Route: 048
     Dates: start: 20140606, end: 20140623
  9. BIOFERMIN [Concomitant]
     Active Substance: BACILLUS SUBTILIS\LACTOBACILLUS ACIDOPHILUS\STREPTOCOCCUS FAECAIS
     Dosage: 3 DF
     Route: 048
     Dates: start: 20140604, end: 20140623
  10. METHADONE [Suspect]
     Active Substance: METHADONE HYDROCHLORIDE
     Indication: CANCER PAIN
     Dosage: 5 MG, (15 MG DAILY DOSE)
     Route: 048
     Dates: start: 20140422, end: 20140428
  11. SERENACE [Concomitant]
     Active Substance: HALOPERIDOL
     Dosage: 1 MG
     Route: 048
     Dates: start: 20140606, end: 20140623
  12. METHADONE [Suspect]
     Active Substance: METHADONE HYDROCHLORIDE
     Dosage: 5 MG, (10 MG DAILY DOSE)
     Route: 048
     Dates: start: 20140618, end: 20140622
  13. SEROQUEL [Concomitant]
     Active Substance: QUETIAPINE FUMARATE
     Indication: INSOMNIA
     Dosage: 25 MG, QD
     Route: 048
     Dates: start: 20140426, end: 20140426
  14. ABSTRAL [Concomitant]
     Active Substance: FENTANYL CITRATE
     Dosage: 0.1 MG, PRN
     Route: 060
     Dates: start: 20140426
  15. MAGNESIUM SULFATE. [Concomitant]
     Active Substance: MAGNESIUM SULFATE
     Dosage: 2.46 MG, UNK
     Route: 051
     Dates: start: 20140422, end: 20140422
  16. LYRICA [Concomitant]
     Active Substance: PREGABALIN
     Indication: ANALGESIC THERAPY
     Dosage: 25 MG
     Route: 048
     Dates: start: 20140619, end: 20140623
  17. FENTANYL. [Concomitant]
     Active Substance: FENTANYL
     Dosage: 0.05 MG, PRN
     Route: 051
     Dates: start: 20140421, end: 20140425
  18. LOXONIN [Concomitant]
     Active Substance: LOXOPROFEN SODIUM
     Dosage: 180 MG, UNK
     Route: 048
     Dates: end: 20140623

REACTIONS (4)
  - Cervix carcinoma [Fatal]
  - Somnolence [Not Recovered/Not Resolved]
  - Insomnia [Recovering/Resolving]
  - Delirium [Recovered/Resolved]

NARRATIVE: CASE EVENT DATE: 20140426
